FAERS Safety Report 13477561 (Version 1)
Quarter: 2017Q2

REPORT INFORMATION
  Report Type: Spontaneous
  Country: SA (occurrence: US)
  Receive Date: 20170425
  Receipt Date: 20170425
  Transmission Date: 20170830
  Serious: Yes (Hospitalization, Other)
  Sender: FDA-Public Use
  Company Number: None

PATIENT
  Age: 78 Year
  Sex: Male
  Weight: 49.2 kg

DRUGS (1)
  1. SIMVASTATIN. [Suspect]
     Active Substance: SIMVASTATIN
     Route: 048
     Dates: start: 20161101, end: 20161119

REACTIONS (4)
  - Respiration abnormal [None]
  - Incorrect dose administered [None]
  - Anticonvulsant drug level increased [None]
  - Confusional state [None]

NARRATIVE: CASE EVENT DATE: 20161101
